FAERS Safety Report 7714964-1 (Version None)
Quarter: 2011Q3

REPORT INFORMATION
  Report Type: 
  Country: None (occurrence: None)
  Receive Date: 20110829
  Receipt Date: 20110426
  Transmission Date: 20111222
  Serious: No
  Sender: FDA-Public Use
  Company Number: US-ASTRAZENECA-2011SE23892

PATIENT
  Sex: Male
  Weight: 68 kg

DRUGS (2)
  1. VIMOVO [Suspect]
     Indication: ARTHRITIS
     Dosage: 500 MG/20 MG BID
     Route: 048
     Dates: start: 20110424
  2. VIMOVO [Suspect]
     Dosage: 500 MG/20 MG BID
     Route: 048
     Dates: start: 20110424

REACTIONS (4)
  - THYROID DISORDER [None]
  - BLOOD CHOLESTEROL INCREASED [None]
  - DIABETES MELLITUS [None]
  - EPISTAXIS [None]
